FAERS Safety Report 4386930-8 (Version None)
Quarter: 2004Q2

REPORT INFORMATION
  Report Type: 
  Country: None (occurrence: None)
  Receive Date: 20040630
  Receipt Date: 20040603
  Transmission Date: 20050107
  Serious: Yes (Hospitalization)
  Sender: FDA-Public Use
  Company Number: GB-AMGEN-US080475

PATIENT
  Sex: Male

DRUGS (9)
  1. ENBREL [Suspect]
     Indication: RHEUMATOID ARTHRITIS
     Route: 058
     Dates: start: 20031112, end: 20040204
  2. CHLORAMBUCIL [Concomitant]
  3. ATORVASTATIN CALCIUM [Concomitant]
  4. RAMIPRIL [Concomitant]
  5. ZOTON [Concomitant]
  6. PREDNISOLONE [Concomitant]
  7. DF118 [Concomitant]
  8. ALFACALCIDOL [Concomitant]
  9. PAMIDRONATE DISODIUM [Concomitant]

REACTIONS (5)
  - ENDOCARDITIS [None]
  - NEUROTOXICITY [None]
  - RENAL FAILURE ACUTE [None]
  - THERAPEUTIC AGENT TOXICITY [None]
  - VIIITH NERVE INJURY [None]
